FAERS Safety Report 6864817-6 (Version None)
Quarter: 2010Q3

REPORT INFORMATION
  Report Type: 
  Country: None (occurrence: None)
  Receive Date: 20100721
  Receipt Date: 20080527
  Transmission Date: 20110219
  Serious: No
  Sender: FDA-Public Use
  Company Number: US-PFIZER INC-2008030334

PATIENT
  Sex: Female
  Weight: 62.6 kg

DRUGS (4)
  1. CHANTIX [Suspect]
     Indication: SMOKING CESSATION THERAPY
     Dates: start: 20080301
  2. LISINOPRIL [Concomitant]
  3. DRUG, UNSPECIFIED [Concomitant]
  4. VITAMIN B-12 [Concomitant]

REACTIONS (1)
  - CHEST PAIN [None]
